FAERS Safety Report 19117626 (Version 4)
Quarter: 2021Q3

REPORT INFORMATION
  Report Type: Report from Study
  Country: EG (occurrence: EG)
  Receive Date: 20210409
  Receipt Date: 20210830
  Transmission Date: 20211014
  Serious: Yes (Other)
  Sender: FDA-Public Use
  Company Number: EG-REGENERON PHARMACEUTICALS, INC.-2021-40466

PATIENT

DRUGS (5)
  1. EYLEA [Suspect]
     Active Substance: AFLIBERCEPT
     Indication: DIABETIC RETINAL OEDEMA
     Dosage: UNK,LEFT EYE (TOTAL OF  3 INJECTIONS ?2 OS + 1 OD),
     Route: 031
     Dates: start: 20201217
  2. EYLEA [Suspect]
     Active Substance: AFLIBERCEPT
     Dosage: UNK ONE INJECTION IN THE RIGHT EYE
     Route: 031
     Dates: start: 202102
  3. EYLEA [Suspect]
     Active Substance: AFLIBERCEPT
     Dosage: 1 DF, ONCE (OU ? LAST INJECTION)
     Route: 031
     Dates: start: 20210218, end: 20210218
  4. INSULIN [Concomitant]
     Active Substance: INSULIN NOS
     Indication: DIABETES MELLITUS
     Dosage: 50 IU BEFORE THE MAIN MEAL
     Dates: start: 2016
  5. VICTOZA [Concomitant]
     Active Substance: LIRAGLUTIDE
     Indication: PRODUCT USED FOR UNKNOWN INDICATION
     Dosage: 1.8 ML EITHER IN THE MORNING OR BEFORE BEDTIME
     Route: 031
     Dates: start: 2016

REACTIONS (4)
  - Diabetic retinal oedema [Recovered/Resolved]
  - Inappropriate schedule of product administration [Not Recovered/Not Resolved]
  - Ocular vascular disorder [Unknown]
  - Vitreous disorder [Unknown]

NARRATIVE: CASE EVENT DATE: 20201217
